FAERS Safety Report 6993133-7 (Version None)
Quarter: 2010Q3

REPORT INFORMATION
  Report Type: 
  Country: None (occurrence: None)
  Receive Date: 20100917
  Receipt Date: 20100113
  Transmission Date: 20110219
  Serious: No
  Sender: FDA-Public Use
  Company Number: US-ASTRAZENECA-2010SE01594

PATIENT
  Age: 39 Year
  Sex: Female
  Weight: 53.5 kg

DRUGS (3)
  1. SEROQUEL XR [Suspect]
     Indication: GENERALISED ANXIETY DISORDER
     Route: 048
     Dates: start: 20091101
  2. EFFEXOR [Concomitant]
  3. CLONAZEPAM [Concomitant]

REACTIONS (2)
  - DRUG DOSE OMISSION [None]
  - SLUGGISHNESS [None]
